FAERS Safety Report 6611503-3 (Version None)
Quarter: 2010Q1

REPORT INFORMATION
  Report Type: 
  Country: None (occurrence: None)
  Receive Date: 20100303
  Receipt Date: 20100218
  Transmission Date: 20100710
  Serious: Yes (Other)
  Sender: FDA-Public Use
  Company Number: PHHY2010BR09933

PATIENT
  Sex: Male

DRUGS (2)
  1. FORASEQ [Suspect]
  2. PROCTO-GLYVENOL [Suspect]

REACTIONS (2)
  - CHRONIC OBSTRUCTIVE PULMONARY DISEASE [None]
  - HAEMORRHOIDS [None]
